FAERS Safety Report 8173820-8 (Version None)
Quarter: 2012Q1

REPORT INFORMATION
  Report Type: 
  Country: None (occurrence: None)
  Receive Date: 20120224
  Receipt Date: 20120125
  Transmission Date: 20120608
  Serious: Yes (Hospitalization)
  Sender: FDA-Public Use
  Company Number: GB-025235

PATIENT
  Age: 80 Year
  Sex: Male

DRUGS (3)
  1. RITUXIMAB [Suspect]
     Indication: CHRONIC LYMPHOCYTIC LEUKAEMIA
     Dosage: 910 MG CYCLIC
  2. CHLORAMBUCIL [Suspect]
     Indication: CHRONIC LYMPHOCYTIC LEUKAEMIA
     Dosage: 18 MG CYCLIC, ORAL
     Route: 048
     Dates: start: 20111109
  3. ACYCLOVIR [Concomitant]

REACTIONS (4)
  - CONDITION AGGRAVATED [None]
  - NEUTROPENIC SEPSIS [None]
  - COUGH [None]
  - HAEMOGLOBIN DECREASED [None]
